FAERS Safety Report 7070579-2 (Version None)
Quarter: 2010Q4

REPORT INFORMATION
  Report Type: 
  Country: None (occurrence: None)
  Receive Date: 20101027
  Receipt Date: 20101027
  Transmission Date: 20110411
  Serious: Yes (Hospitalization)
  Sender: FDA-Public Use
  Company Number: None

PATIENT
  Age: 15 Month
  Sex: Male
  Weight: 11.7935 kg

DRUGS (2)
  1. TEETHING TABLETS 125 TABLETS HYLAND [Suspect]
     Indication: TEETHING
     Dosage: 2-3 TABLETS EVERY 8 HOURS SL
     Route: 060
     Dates: start: 20100301, end: 20101023
  2. TEETHING TABLETS [Suspect]

REACTIONS (7)
  - CONSTIPATION [None]
  - FLUSHING [None]
  - IRRITABILITY [None]
  - LETHARGY [None]
  - PYREXIA [None]
  - TREMOR [None]
  - VOMITING [None]
